FAERS Safety Report 21932998 (Version 2)
Quarter: 2023Q1

REPORT INFORMATION
  Report Type: Spontaneous
  Country: GR (occurrence: GR)
  Receive Date: 20230131
  Receipt Date: 20230209
  Transmission Date: 20230418
  Serious: Yes (Death, Other)
  Sender: FDA-Public Use
  Company Number: GR-ROCHE-3262761

PATIENT
  Age: 70 Year
  Sex: Female

DRUGS (7)
  1. DEXAMETHASONE [Suspect]
     Active Substance: DEXAMETHASONE
     Indication: Diffuse large B-cell lymphoma
     Route: 065
     Dates: start: 20221222, end: 20221224
  2. DEXAMETHASONE [Suspect]
     Active Substance: DEXAMETHASONE
     Route: 065
     Dates: start: 20221226, end: 20221229
  3. OBINUTUZUMAB [Suspect]
     Active Substance: OBINUTUZUMAB
     Indication: Diffuse large B-cell lymphoma
     Route: 042
     Dates: start: 20221224
  4. OBINUTUZUMAB [Suspect]
     Active Substance: OBINUTUZUMAB
     Route: 042
     Dates: start: 20221223
  5. CYCLOPHOSPHAMIDE [Suspect]
     Active Substance: CYCLOPHOSPHAMIDE
     Indication: Diffuse large B-cell lymphoma
     Route: 065
     Dates: start: 20221227, end: 20221229
  6. GLOFITAMAB [Suspect]
     Active Substance: GLOFITAMAB
     Indication: Diffuse large B-cell lymphoma
     Route: 065
     Dates: start: 20221231
  7. GLOFITAMAB [Suspect]
     Active Substance: GLOFITAMAB
     Route: 065
     Dates: start: 20230107

REACTIONS (20)
  - Anuria [Fatal]
  - Multiple organ dysfunction syndrome [Fatal]
  - Hypotension [Fatal]
  - Sepsis [Fatal]
  - Condition aggravated [Recovering/Resolving]
  - Vocal cord paralysis [Unknown]
  - Cytokine release syndrome [Recovering/Resolving]
  - Neutropenia [Recovered/Resolved]
  - Hypernatraemia [Unknown]
  - Blood creatine phosphokinase increased [Unknown]
  - Blood uric acid increased [Not Recovered/Not Resolved]
  - Hypoalbuminaemia [Not Recovered/Not Resolved]
  - Anaemia [Unknown]
  - Generalised oedema [Not Recovered/Not Resolved]
  - Pleural effusion [Not Recovered/Not Resolved]
  - Blood lactate dehydrogenase increased [Recovering/Resolving]
  - Liver function test abnormal [Not Recovered/Not Resolved]
  - Hepatic enzyme increased [Recovering/Resolving]
  - Pneumonia [Not Recovered/Not Resolved]
  - Thrombocytopenia [Unknown]

NARRATIVE: CASE EVENT DATE: 20221223
